FAERS Safety Report 17025043 (Version 1)
Quarter: 2019Q4

REPORT INFORMATION
  Report Type: Spontaneous
  Country: US (occurrence: US)
  Receive Date: 20191113
  Receipt Date: 20191113
  Transmission Date: 20200122
  Serious: Yes (Other)
  Sender: FDA-Public Use
  Company Number: US-APOTEX-2019AP024695

PATIENT
  Age: 77 Year
  Sex: Male

DRUGS (5)
  1. BACLOFEN. [Concomitant]
     Active Substance: BACLOFEN
     Indication: PRODUCT USED FOR UNKNOWN INDICATION
     Dosage: UNK
     Route: 065
  2. TERAZOSIN [Suspect]
     Active Substance: TERAZOSIN HYDROCHLORIDE
     Indication: NEUROGENIC BLADDER
  3. LORAZEPAM. [Concomitant]
     Active Substance: LORAZEPAM
     Indication: URODYNAMICS MEASUREMENT
     Dosage: UNK, PRN, BEFORE PREVIOUS URODYNAMICS HAD TAKEN PRN
     Route: 065
  4. TERAZOSIN [Suspect]
     Active Substance: TERAZOSIN HYDROCHLORIDE
     Indication: DETRUSOR SPHINCTER DYSSYNERGIA
     Dosage: 6 MG, BID
     Route: 065
  5. METHENAMINE HIPPURATE. [Concomitant]
     Active Substance: METHENAMINE HIPPURATE
     Indication: PRODUCT USED FOR UNKNOWN INDICATION
     Dosage: 1 G, BID
     Route: 065

REACTIONS (2)
  - Autonomic dysreflexia [Unknown]
  - Product dose omission [Unknown]
